FAERS Safety Report 11486016 (Version 1)
Quarter: 2015Q3

REPORT INFORMATION
  Report Type: Spontaneous
  Country: FR (occurrence: FR)
  Receive Date: 20150910
  Receipt Date: 20150910
  Transmission Date: 20151125
  Serious: Yes (Death, Hospitalization)
  Sender: FDA-Public Use
  Company Number: FR-ROCHE-1525581

PATIENT
  Age: 22 Year
  Sex: Female

DRUGS (2)
  1. MABTHERA [Suspect]
     Active Substance: RITUXIMAB
     Indication: AUTOIMMUNE HAEMOLYTIC ANAEMIA
     Dosage: 4 INFUSIONS IN TOTAL
     Route: 041
     Dates: start: 20140718, end: 20140809
  2. CERAZETTE (FRANCE) [Concomitant]
     Indication: CONTRACEPTION
     Route: 048
     Dates: start: 201410

REACTIONS (5)
  - Product use issue [Unknown]
  - Cardiac arrest [Fatal]
  - Encephalitis enteroviral [Fatal]
  - Cardiac failure [Fatal]
  - Viral cardiomyopathy [Fatal]

NARRATIVE: CASE EVENT DATE: 20150119
